FAERS Safety Report 5909601-2 (Version None)
Quarter: 2008Q4

REPORT INFORMATION
  Report Type: 
  Country: None (occurrence: None)
  Receive Date: 20081002
  Receipt Date: 20080929
  Transmission Date: 20090506
  Serious: Yes (Other)
  Sender: FDA-Public Use
  Company Number: GXKR2008DE09246

PATIENT
  Age: 78 Year
  Sex: Male
  Weight: 89 kg

DRUGS (4)
  1. DEXAMETHASONE TAB [Suspect]
     Dosage: 40 MG DAILY, ORAL
     Route: 048
     Dates: start: 20080602, end: 20080815
  2. REVLIMID [Concomitant]
  3. OMEP (OMEPRAZOLE) [Concomitant]
  4. GLIMEPIRIDE [Concomitant]

REACTIONS (5)
  - DIZZINESS [None]
  - GAIT DISTURBANCE [None]
  - MUSCULAR WEAKNESS [None]
  - NEUROPATHY PERIPHERAL [None]
  - TREMOR [None]
